FAERS Safety Report 7481974-1 (Version None)
Quarter: 2011Q2

REPORT INFORMATION
  Report Type: 
  Country: None (occurrence: None)
  Receive Date: 20110516
  Receipt Date: 20110502
  Transmission Date: 20111010
  Serious: Yes (Other)
  Sender: FDA-Public Use
  Company Number: CA-JNJFOC-20110501417

PATIENT
  Sex: Female
  Weight: 77.11 kg

DRUGS (2)
  1. PERCOCET [Suspect]
     Indication: PRODUCT USED FOR UNKNOWN INDICATION
     Dosage: 1 TAB EVERY 4 HOURS AS NEEDED
  2. REMICADE [Suspect]
     Indication: CROHN'S DISEASE
     Route: 042
     Dates: start: 20110418

REACTIONS (4)
  - DYSPNOEA [None]
  - RESPIRATORY TRACT CONGESTION [None]
  - FATIGUE [None]
  - WHEEZING [None]
